FAERS Safety Report 24086277 (Version 1)
Quarter: 2024Q3

REPORT INFORMATION
  Report Type: Spontaneous
  Country: CN (occurrence: CN)
  Receive Date: 20240712
  Receipt Date: 20240712
  Transmission Date: 20241017
  Serious: Yes (Other)
  Sender: PFIZER
  Company Number: CN-PFIZER INC-PV202400091311

PATIENT
  Age: 68 Year
  Sex: Male
  Weight: 63 kg

DRUGS (3)
  1. METHYLPREDNISOLONE [Suspect]
     Active Substance: METHYLPREDNISOLONE
     Indication: Drug eruption
     Dosage: 24 MG, 1X/DAY
     Route: 048
     Dates: start: 20240502
  2. METHYLPREDNISOLONE [Suspect]
     Active Substance: METHYLPREDNISOLONE
     Dosage: 20 MG, 1X/DAY
     Route: 048
     Dates: start: 20240701
  3. METHYLPREDNISOLONE [Suspect]
     Active Substance: METHYLPREDNISOLONE
     Dosage: 16 MG, 1X/DAY
     Route: 048
     Dates: start: 2024

REACTIONS (2)
  - Steroid diabetes [Recovering/Resolving]
  - Blood glucose increased [Recovering/Resolving]

NARRATIVE: CASE EVENT DATE: 20240622
